FAERS Safety Report 5519227-0 (Version None)
Quarter: 2007Q4

REPORT INFORMATION
  Report Type: 
  Country: None (occurrence: None)
  Receive Date: 20071114
  Receipt Date: 20071114
  Transmission Date: 20080405
  Serious: Yes (Hospitalization)
  Sender: FDA-Public Use
  Company Number: None

PATIENT
  Sex: Male
  Weight: 79.1 kg

DRUGS (4)
  1. FLUOROURACIL [Suspect]
     Dosage: 5180 MG
     Dates: end: 20071024
  2. BEVACIZUMAB (RHUMAB VEGF) [Suspect]
     Dosage: 387 MG
     Dates: end: 20071024
  3. LEUCOVORIN CALCIUM [Suspect]
     Dosage: 740 MG
     Dates: end: 20071024
  4. ELOXATIN [Suspect]
     Dosage: 47 MG
     Dates: end: 20071024

REACTIONS (1)
  - TYPE IV HYPERSENSITIVITY REACTION [None]
